FAERS Safety Report 9671917 (Version 1)
Quarter: 2013Q4

REPORT INFORMATION
  Report Type: Spontaneous
  Country: CH (occurrence: CH)
  Receive Date: 20131106
  Receipt Date: 20131106
  Transmission Date: 20140711
  Serious: Yes (Death, Hospitalization, Other)
  Sender: FDA-Public Use
  Company Number: CH-ELI_LILLY_AND_COMPANY-CH201310008826

PATIENT
  Age: 78 Year
  Sex: Male
  Weight: 85.7 kg

DRUGS (17)
  1. CYMBALTA [Suspect]
     Indication: DEPRESSION
     Dosage: 60 MG, QD
     Route: 048
     Dates: start: 20101203, end: 20130107
  2. KETALGIN [Interacting]
     Indication: PAIN
     Dosage: 4 MG, QD
     Route: 048
     Dates: start: 20121011
  3. KETALGIN [Interacting]
     Dosage: 3 MG, QD
     Route: 048
     Dates: start: 20121214
  4. KETALGIN [Interacting]
     Dosage: 2.5 MG, QD (1X/D ORALLY ON SPECIALISTS ADVICE)
     Route: 048
     Dates: end: 20121227
  5. SINTROM [Concomitant]
     Indication: ATRIAL FIBRILLATION
     Dosage: UNK UNK, UNKNOWN
     Route: 048
  6. SINTROM [Concomitant]
     Indication: ATRIAL FLUTTER
  7. ATORVASTATIN [Concomitant]
     Indication: HYPERCHOLESTEROLAEMIA
     Dosage: 40 MG, QD
     Route: 048
  8. LISINOPRIL [Concomitant]
     Indication: ESSENTIAL HYPERTENSION
     Dosage: 10 MG, QD
     Route: 048
  9. MOVICOL [Concomitant]
     Indication: CONSTIPATION
     Dosage: UNK UNK, BID 1 SACHET: 13.125 G OF MACROGOL 3350, 178.6 MG OF SODIUM BICARBONATE, 350.8 MG OF SODIUM
     Route: 048
  10. ACENOCOUMAROL [Concomitant]
     Indication: ANTICOAGULANT THERAPY
     Dosage: UNK, UNKNOWN
     Route: 065
  11. RIVOTRIL [Concomitant]
     Indication: ANALGESIC THERAPY
     Dosage: UNK, UNKNOWN
     Route: 065
  12. DAFALGAN [Concomitant]
     Indication: PRODUCT USED FOR UNKNOWN INDICATION
     Dosage: UNK, UNKNOWN
     Route: 065
  13. SEROQUEL [Concomitant]
     Indication: PRODUCT USED FOR UNKNOWN INDICATION
     Dosage: 6.25 MG, BID
     Route: 065
  14. LYRICA [Concomitant]
     Indication: PRODUCT USED FOR UNKNOWN INDICATION
     Dosage: 150 MG, BID
     Route: 065
  15. LYRICA [Concomitant]
     Dosage: 100 MG, BID
     Route: 065
     Dates: start: 20121214
  16. HALOPERIDOL [Concomitant]
     Indication: PRODUCT USED FOR UNKNOWN INDICATION
     Dosage: 0.5 MG, SINGLE
     Route: 058
     Dates: start: 20121211, end: 20121211
  17. NACL [Concomitant]
     Indication: PRODUCT USED FOR UNKNOWN INDICATION
     Dosage: UNK, UNKNOWN
     Route: 065
     Dates: end: 20121223

REACTIONS (34)
  - Bacterial infection [Fatal]
  - Serotonin syndrome [Recovered/Resolved]
  - Pain [Unknown]
  - Subileus [Unknown]
  - Cerebral atrophy [Unknown]
  - Syncope [Unknown]
  - Cerebral microhaemorrhage [Unknown]
  - Drug interaction [Recovered/Resolved]
  - Memory impairment [Recovered/Resolved]
  - Hearing impaired [Unknown]
  - Pain [Unknown]
  - Speech disorder [Unknown]
  - Incoherent [Unknown]
  - Sensory disturbance [Unknown]
  - Choking [Unknown]
  - Depressed level of consciousness [Unknown]
  - Ataxia [Unknown]
  - Grimacing [Unknown]
  - C-reactive protein increased [Unknown]
  - Hyperreflexia [Unknown]
  - Gait disturbance [Unknown]
  - Agitation [Unknown]
  - Headache [Unknown]
  - Visual impairment [Unknown]
  - Dizziness [Unknown]
  - Blood glucose increased [Unknown]
  - Disorientation [Unknown]
  - Sedation [Unknown]
  - Constipation [Unknown]
  - Dehydration [Unknown]
  - Lethargy [Unknown]
  - Hyperhidrosis [Unknown]
  - Somnolence [Unknown]
  - Musculoskeletal stiffness [Unknown]
